FAERS Safety Report 21254183 (Version 1)
Quarter: 2022Q3

REPORT INFORMATION
  Report Type: Spontaneous
  Country: US (occurrence: None)
  Receive Date: 20220824
  Receipt Date: 20220824
  Transmission Date: 20221026
  Serious: Yes (Hospitalization)
  Sender: FDA-Public Use
  Company Number: None

PATIENT
  Age: 74 Year
  Sex: Male
  Weight: 105.19 kg

DRUGS (14)
  1. INLYTA [Suspect]
     Active Substance: AXITINIB
     Indication: Renal cancer
     Dosage: FREQUENCY : TWICE A DAY;?
     Route: 048
  2. ALFUZOSIN HYDROCHLORIDE [Concomitant]
     Active Substance: ALFUZOSIN HYDROCHLORIDE
  3. ALLOPURINOL [Concomitant]
  4. Aspirin [Concomitant]
  5. ATORVASTATIN [Concomitant]
  6. VITAMIN D3 [Concomitant]
  7. ELIQUIS [Concomitant]
  8. ENTRESTO [Concomitant]
  9. FARXIGA [Concomitant]
  10. flomag [Concomitant]
  11. HYDRALAZINE [Concomitant]
     Active Substance: HYDRALAZINE HYDROCHLORIDE
  12. LOKELMA [Concomitant]
     Active Substance: SODIUM ZIRCONIUM CYCLOSILICATE
  13. METOPROLOL SUCCINATE [Concomitant]
  14. TORSEMIDE [Concomitant]
     Active Substance: TORSEMIDE

REACTIONS (3)
  - Dehydration [None]
  - Diarrhoea [None]
  - Dysphonia [None]
